FAERS Safety Report 17481449 (Version 2)
Quarter: 2022Q1

REPORT INFORMATION
  Report Type: Spontaneous
  Country: US (occurrence: US)
  Receive Date: 20200302
  Receipt Date: 20220222
  Transmission Date: 20220423
  Serious: No
  Sender: FDA-Public Use
  Company Number: US-ALLERGAN-1942555US

PATIENT
  Age: 80 Year
  Sex: Male

DRUGS (2)
  1. OZURDEX [Suspect]
     Active Substance: DEXAMETHASONE
     Indication: Chorioretinal disorder
     Dosage: 0.7 MG, SINGLE
     Route: 031
     Dates: start: 20180319, end: 20180319
  2. OZURDEX [Suspect]
     Active Substance: DEXAMETHASONE
     Indication: Macular oedema

REACTIONS (9)
  - Intraocular pressure decreased [Recovered/Resolved]
  - Eye irritation [Unknown]
  - Off label use [Unknown]
  - Erythema [Unknown]
  - Eye inflammation [Unknown]
  - Vision blurred [Recovered/Resolved]
  - Product expiration date issue [Unknown]
  - Eye infection [Unknown]
  - Implant site extravasation [Recovered/Resolved]

NARRATIVE: CASE EVENT DATE: 20180301
